FAERS Safety Report 8831414 (Version 2)
Quarter: 2012Q4

REPORT INFORMATION
  Report Type: 
  Country: DE (occurrence: JP)
  Receive Date: 20121009
  Receipt Date: 20121107
  Transmission Date: 20130627
  Serious: Yes (Other)
  Sender: FDA-Public Use
  Company Number: JP-BRISTOL-MYERS SQUIBB COMPANY-17009663

PATIENT
  Age: 63 Year
  Sex: Male

DRUGS (4)
  1. METGLUCO [Suspect]
     Indication: DIABETES MELLITUS
     Route: 048
     Dates: start: 20120823, end: 20120920
  2. IRBETAN [Concomitant]
     Indication: HYPERTENSION
     Route: 048
     Dates: start: 20090806
  3. EPADEL [Concomitant]
     Indication: HYPERLIPIDAEMIA
     Route: 048
     Dates: start: 20090806
  4. ZETIA [Concomitant]
     Indication: HYPERCHOLESTEROLAEMIA
     Route: 048
     Dates: start: 20091031

REACTIONS (1)
  - Hepatic function abnormal [Recovered/Resolved]
